FAERS Safety Report 8595723-7 (Version None)
Quarter: 2012Q3

REPORT INFORMATION
  Report Type: 
  Country: None (occurrence: None)
  Receive Date: 20120815
  Receipt Date: 20120808
  Transmission Date: 20120928
  Serious: Yes (Hospitalization)
  Sender: FDA-Public Use
  Company Number: PHHY2012GB068513

PATIENT
  Age: 43 Year
  Sex: Female

DRUGS (2)
  1. ALPRAZOLAM [Suspect]
     Dosage: 15 MG, UNK
  2. METHADONE HYDROCHLORIDE [Suspect]
     Dosage: 180 MG, UNK

REACTIONS (22)
  - TREMOR [None]
  - HEPATIC FAILURE [None]
  - BLOOD PRESSURE SYSTOLIC DECREASED [None]
  - HYPOXIA [None]
  - INTENTIONAL OVERDOSE [None]
  - ABNORMAL BEHAVIOUR [None]
  - GAIT APRAXIA [None]
  - APRAXIA [None]
  - HYPOGLYCAEMIA [None]
  - PNEUMONIA ASPIRATION [None]
  - LOSS OF CONSCIOUSNESS [None]
  - PSYCHOMOTOR RETARDATION [None]
  - RESPIRATORY RATE DECREASED [None]
  - LACK OF SPONTANEOUS SPEECH [None]
  - URINARY INCONTINENCE [None]
  - LEUKOENCEPHALOPATHY [None]
  - DISORIENTATION [None]
  - MEMORY IMPAIRMENT [None]
  - MOTOR DYSFUNCTION [None]
  - APATHY [None]
  - SLUGGISHNESS [None]
  - RENAL TUBULAR NECROSIS [None]
